FAERS Safety Report 24443903 (Version 2)
Quarter: 2024Q4

REPORT INFORMATION
  Report Type: Report from Study
  Country: US (occurrence: US)
  Receive Date: 20241016
  Receipt Date: 20241017
  Transmission Date: 20250115
  Serious: No
  Sender: ROCHE
  Company Number: US-ROCHE-2650958

PATIENT
  Age: 46 Year
  Sex: Female
  Weight: 70.31 kg

DRUGS (7)
  1. RITUXAN [Suspect]
     Active Substance: RITUXIMAB
     Indication: Multiple sclerosis
     Dosage: 10 MG, DATE OF TREATMENT: 15/OCT/2018 AND 10/OCT/2018, 12/APR/2018, MAR/2022
     Route: 041
     Dates: start: 20170907
  2. RITUXAN [Suspect]
     Active Substance: RITUXIMAB
     Indication: Medical counselling
     Route: 041
     Dates: start: 2017
  3. RITUXAN [Suspect]
     Active Substance: RITUXIMAB
     Indication: Vasodilatation
  4. TYLENOL [Concomitant]
     Active Substance: ACETAMINOPHEN
     Route: 048
  5. VITAMIN D3 [Concomitant]
     Active Substance: CHOLECALCIFEROL
  6. BENADRYL [Concomitant]
     Active Substance: DIPHENHYDRAMINE HYDROCHLORIDE
     Dosage: 25 MG
     Route: 042
  7. SOLU-MEDROL [Concomitant]
     Active Substance: METHYLPREDNISOLONE SODIUM SUCCINATE
     Route: 042

REACTIONS (3)
  - Off label use [Unknown]
  - Throat irritation [Not Recovered/Not Resolved]
  - Pharyngeal swelling [Recovered/Resolved]

NARRATIVE: CASE EVENT DATE: 20170101
